FAERS Safety Report 14943818 (Version 1)
Quarter: 2018Q2

REPORT INFORMATION
  Report Type: Spontaneous
  Country: FR (occurrence: FR)
  Receive Date: 20180528
  Receipt Date: 20180528
  Transmission Date: 20180711
  Serious: Yes (Life-Threatening, Hospitalization)
  Sender: FDA-Public Use
  Company Number: FR-TEVA-2018-FR-898190

PATIENT
  Age: 37 Year
  Sex: Female
  Weight: 49 kg

DRUGS (11)
  1. TROPATEPINE (CHLORHYDRATE DE) [Concomitant]
     Route: 065
  2. SALBUTAMOL [Concomitant]
     Active Substance: ALBUTEROL
     Route: 065
  3. LOXAPINE BASE [Suspect]
     Active Substance: LOXAPINE
     Indication: BIPOLAR DISORDER
     Dosage: 25 MILLIGRAM DAILY;
     Route: 048
  4. BISOPROLOL (HEMIFUMARATE DE) [Concomitant]
     Active Substance: BISOPROLOL FUMARATE
     Route: 065
  5. NORMACOL [Concomitant]
     Active Substance: HERBALS\KARAYA GUM
     Route: 065
  6. VITAMINE B12 [Concomitant]
     Active Substance: CYANOCOBALAMIN
     Route: 065
  7. NICOPATCH [Concomitant]
     Active Substance: NICOTINE
     Route: 065
  8. TIOTROPIUM BASE [Concomitant]
     Route: 065
  9. EFFIZINC 15 MG, G?LULE [Concomitant]
     Route: 065
  10. OLANZAPINE. [Suspect]
     Active Substance: OLANZAPINE
     Indication: BIPOLAR DISORDER
     Dosage: 15 MILLIGRAM DAILY;
     Route: 048
  11. DEPAKOTE [Concomitant]
     Active Substance: DIVALPROEX SODIUM
     Indication: BIPOLAR DISORDER
     Dosage: 500 MILLIGRAM DAILY;
     Route: 048

REACTIONS (2)
  - Subileus [Recovered/Resolved]
  - Septic shock [Recovered/Resolved]

NARRATIVE: CASE EVENT DATE: 20170612
